FAERS Safety Report 13096052 (Version 1)
Quarter: 2017Q1

REPORT INFORMATION
  Report Type: Spontaneous
  Country: GB (occurrence: GB)
  Receive Date: 20170109
  Receipt Date: 20170109
  Transmission Date: 20170428
  Serious: Yes (Hospitalization)
  Sender: FDA-Public Use
  Company Number: GB-ASTRAZENECA-2016SF38101

PATIENT
  Age: 69 Year
  Sex: Male
  Weight: 85 kg

DRUGS (4)
  1. FELODIPINE. [Concomitant]
     Active Substance: FELODIPINE
  2. LOSARTAN. [Concomitant]
     Active Substance: LOSARTAN
  3. SPIRONOLACTONE. [Concomitant]
     Active Substance: SPIRONOLACTONE
  4. DAPAGLIFLOZIN [Suspect]
     Active Substance: DAPAGLIFLOZIN
     Indication: TYPE 2 DIABETES MELLITUS
     Dosage: 10.0MG UNKNOWN
     Route: 048
     Dates: start: 20160721, end: 20161127

REACTIONS (1)
  - Diabetic ketoacidosis [Recovered/Resolved]
